FAERS Safety Report 22945263 (Version 2)
Quarter: 2023Q4

REPORT INFORMATION
  Report Type: Spontaneous
  Country: DE (occurrence: DE)
  Receive Date: 20230914
  Receipt Date: 20231005
  Transmission Date: 20240110
  Serious: Yes (Death)
  Sender: FDA-Public Use
  Company Number: DE-SK LIFE SCIENCE, INC-SKPVG-2023-001048

PATIENT

DRUGS (1)
  1. XCOPRI [Suspect]
     Active Substance: CENOBAMATE
     Indication: Status epilepticus
     Dosage: 100 MILLIGRAM
     Route: 048

REACTIONS (2)
  - Hyperthermia [Fatal]
  - Off label use [Unknown]
